FAERS Safety Report 23755653 (Version 1)
Quarter: 2024Q2

REPORT INFORMATION
  Report Type: Spontaneous
  Country: CN (occurrence: CN)
  Receive Date: 20240418
  Receipt Date: 20240418
  Transmission Date: 20240716
  Serious: Yes (Hospitalization)
  Sender: FDA-Public Use
  Company Number: CN-SHANGHAI JUNSHI BIOSCIENCES CO., LTD.-CN2024009718

PATIENT

DRUGS (12)
  1. TORIPALIMAB [Suspect]
     Active Substance: TORIPALIMAB
     Indication: Squamous cell carcinoma of skin
     Dosage: 240 MG
     Route: 041
     Dates: start: 20231221
  2. TORIPALIMAB [Suspect]
     Active Substance: TORIPALIMAB
     Dosage: 240 MG
     Route: 041
     Dates: start: 20240111
  3. TORIPALIMAB [Suspect]
     Active Substance: TORIPALIMAB
     Dosage: 240 MG
     Route: 041
     Dates: start: 20240201
  4. TORIPALIMAB [Suspect]
     Active Substance: TORIPALIMAB
     Dosage: 240 MG
     Route: 041
     Dates: start: 20240228, end: 20240228
  5. NEDAPLATIN [Suspect]
     Active Substance: NEDAPLATIN
     Indication: Squamous cell carcinoma of skin
     Dosage: 120 MG (D2)
     Route: 041
     Dates: start: 20231221
  6. NEDAPLATIN [Suspect]
     Active Substance: NEDAPLATIN
     Dosage: 120 MG (D2)
     Route: 041
     Dates: start: 20240111
  7. NEDAPLATIN [Suspect]
     Active Substance: NEDAPLATIN
     Dosage: 120 MG (D2)
     Route: 041
     Dates: start: 20240201
  8. NEDAPLATIN [Suspect]
     Active Substance: NEDAPLATIN
     Dosage: 120 MG (D2)
     Route: 041
     Dates: start: 20240228
  9. PACLITAXEL [Suspect]
     Active Substance: PACLITAXEL
     Indication: Squamous cell carcinoma of skin
     Dosage: 360 MG (D1)
     Route: 041
     Dates: start: 20231221
  10. PACLITAXEL [Suspect]
     Active Substance: PACLITAXEL
     Dosage: 360 MG (D1)
     Route: 041
     Dates: start: 20240111
  11. PACLITAXEL [Suspect]
     Active Substance: PACLITAXEL
     Dosage: 360 MG (D1)
     Route: 041
     Dates: start: 20240201
  12. PACLITAXEL [Suspect]
     Active Substance: PACLITAXEL
     Dosage: 360 MG (D1)
     Route: 041
     Dates: start: 20240228

REACTIONS (2)
  - Myelosuppression [Recovering/Resolving]
  - Off label use [Unknown]

NARRATIVE: CASE EVENT DATE: 20231221
